FAERS Safety Report 9263579 (Version 1)
Quarter: 2013Q2

REPORT INFORMATION
  Report Type: Spontaneous
  Country: US (occurrence: None)
  Receive Date: 20130429
  Receipt Date: 20130429
  Transmission Date: 20140414
  Serious: Yes (Other)
  Sender: FDA-Public Use
  Company Number: None

PATIENT
  Age: 57 Year
  Sex: Female

DRUGS (1)
  1. POMALIDOMIDE [Suspect]
     Indication: MYELOFIBROSIS
     Route: 048
     Dates: start: 20130308, end: 20130322

REACTIONS (1)
  - Retinal vein thrombosis [None]
